FAERS Safety Report 25674365 (Version 1)
Quarter: 2025Q3

REPORT INFORMATION
  Report Type: Spontaneous
  Country: US (occurrence: US)
  Receive Date: 20250813
  Receipt Date: 20250813
  Transmission Date: 20251021
  Serious: No
  Sender: DR REDDYS
  Company Number: US-DRL-USA-USA/2025/07/011528

PATIENT
  Age: 27 Year

DRUGS (1)
  1. ACCUTANE [Suspect]
     Active Substance: ISOTRETINOIN
     Indication: Product used for unknown indication
     Route: 065
     Dates: start: 20250301

REACTIONS (3)
  - Dry skin [Unknown]
  - Lip dry [Unknown]
  - Nasal dryness [Unknown]

NARRATIVE: CASE EVENT DATE: 20250625
